FAERS Safety Report 20436796 (Version 1)
Quarter: 2022Q1

REPORT INFORMATION
  Report Type: Spontaneous
  Country: IN (occurrence: IN)
  Receive Date: 20220207
  Receipt Date: 20220207
  Transmission Date: 20220423
  Serious: Yes (Hospitalization, Other)
  Sender: FDA-Public Use
  Company Number: IN-LUPIN PHARMACEUTICALS INC.-2022-01482

PATIENT
  Age: 52 Year
  Sex: Female

DRUGS (2)
  1. LURASIDONE [Suspect]
     Active Substance: LURASIDONE
     Indication: Bipolar disorder
     Dosage: 40 MG, QD
     Route: 065
  2. VALPROATE SODIUM [Concomitant]
     Active Substance: VALPROATE SODIUM
     Indication: Bipolar disorder
     Dosage: 800 MG, QD
     Route: 065

REACTIONS (4)
  - Bipolar disorder [Recovering/Resolving]
  - Disease recurrence [Recovering/Resolving]
  - Product administration interrupted [Unknown]
  - Rebound effect [Recovering/Resolving]
